FAERS Safety Report 14410426 (Version 3)
Quarter: 2018Q1

REPORT INFORMATION
  Report Type: Report from Study
  Country: US (occurrence: US)
  Receive Date: 20180119
  Receipt Date: 20180323
  Transmission Date: 20180509
  Serious: Yes (Death, Life-Threatening, Hospitalization, Other)
  Sender: FDA-Public Use
  Company Number: US-BRISTOL-MYERS SQUIBB COMPANY-BMS-2018-003674

PATIENT
  Age: 67 Year
  Sex: Female
  Weight: 75.5 kg

DRUGS (4)
  1. COUMADIN [Concomitant]
     Active Substance: WARFARIN SODIUM
     Indication: PRODUCT USED FOR UNKNOWN INDICATION
     Dosage: 2.5 MG, QD
     Route: 065
     Dates: start: 20171224, end: 20171225
  2. NIVOLUMAB [Suspect]
     Active Substance: NIVOLUMAB
     Indication: UTERINE CANCER
     Dosage: 480 MG, UNK
     Route: 042
     Dates: start: 20171205
  3. IPILIMUMAB [Suspect]
     Active Substance: IPILIMUMAB
     Indication: UTERINE CANCER
     Dosage: 72 MG, UNK
     Route: 042
     Dates: start: 20171205
  4. COUMADIN [Concomitant]
     Active Substance: WARFARIN SODIUM
     Indication: DEEP VEIN THROMBOSIS
     Dosage: UNK
     Route: 065
     Dates: start: 20171205

REACTIONS (4)
  - International normalised ratio increased [Recovered/Resolved]
  - Anaemia [Unknown]
  - Haemorrhage [Recovered/Resolved]
  - Sepsis [Fatal]

NARRATIVE: CASE EVENT DATE: 20171226
